FAERS Safety Report 5869718-8 (Version None)
Quarter: 2008Q3

REPORT INFORMATION
  Report Type: 
  Country: None (occurrence: None)
  Receive Date: 20080904
  Receipt Date: 20080826
  Transmission Date: 20090109
  Serious: Yes (Hospitalization, Other)
  Sender: FDA-Public Use
  Company Number: US-CELGENEUS-163-21880-08061116

PATIENT
  Sex: Female

DRUGS (2)
  1. REVLIMID [Suspect]
     Indication: MULTIPLE MYELOMA
     Route: 048
     Dates: start: 20071205, end: 20080101
  2. ERYTHROPOETIN [Concomitant]
     Indication: HAEMOGLOBIN DECREASED
     Dosage: 40,000 UNITS
     Route: 065

REACTIONS (4)
  - DEEP VEIN THROMBOSIS [None]
  - HIP FRACTURE [None]
  - INTESTINAL OBSTRUCTION [None]
  - PULMONARY EMBOLISM [None]
